FAERS Safety Report 11844568 (Version 1)
Quarter: 2015Q4

REPORT INFORMATION
  Report Type: Spontaneous
  Country: GB (occurrence: GB)
  Receive Date: 20151217
  Receipt Date: 20151217
  Transmission Date: 20160305
  Serious: Yes (Other)
  Sender: FDA-Public Use
  Company Number: GB-CIPLA LTD.-2015GB09305

PATIENT

DRUGS (4)
  1. VALACYCLOVIR HYDROCHLORIDE. [Suspect]
     Active Substance: VALACYCLOVIR HYDROCHLORIDE
     Indication: PROPHYLAXIS
     Dosage: 10 MG/KG, BID FOR 6 MONTHS
     Route: 048
  2. ACICLOVIR [Suspect]
     Active Substance: ACYCLOVIR
     Indication: HERPES SIMPLEX
     Dosage: FOR 2 MONTHS
     Route: 042
  3. ACICLOVIR [Suspect]
     Active Substance: ACYCLOVIR
     Dosage: FOR 3 WEEKS
     Route: 042
  4. VALACYCLOVIR HYDROCHLORIDE. [Suspect]
     Active Substance: VALACYCLOVIR HYDROCHLORIDE
     Indication: HERPES SIMPLEX
     Dosage: 10 MG/KG, BID FOR 2 MONTHS
     Route: 048

REACTIONS (5)
  - Herpes simplex encephalitis [Recovered/Resolved]
  - Lethargy [Recovered/Resolved]
  - Poor feeding infant [Recovered/Resolved]
  - Seizure [Recovered/Resolved]
  - Herpes simplex [Recovered/Resolved]
